FAERS Safety Report 18007323 (Version 1)
Quarter: 2020Q3

REPORT INFORMATION
  Report Type: Spontaneous
  Country: US (occurrence: US)
  Receive Date: 20200710
  Receipt Date: 20200710
  Transmission Date: 20201103
  Serious: Yes (Life-Threatening, Hospitalization, Other)
  Sender: FDA-Public Use
  Company Number: US-LUPIN PHARMACEUTICALS INC.-2020-03178

PATIENT
  Age: 27 Year
  Sex: Male
  Weight: 80 kg

DRUGS (3)
  1. HYDROXYCHLOROQUINE SULFATE TABLETS [Suspect]
     Active Substance: HYDROXYCHLOROQUINE SULFATE
     Indication: PRODUCT USED FOR UNKNOWN INDICATION
     Dosage: 20 DOSAGE FORM (INTENTIONAL OVERDOSE)
     Route: 048
  2. PREDNISONE. [Suspect]
     Active Substance: PREDNISONE
     Indication: PRODUCT USED FOR UNKNOWN INDICATION
     Dosage: 30 DOSAGE FORM (INTENTIONAL OVERDOSE)
     Route: 065
  3. METHOTREXATE. [Suspect]
     Active Substance: METHOTREXATE
     Indication: PRODUCT USED FOR UNKNOWN INDICATION
     Dosage: 30 DOSAGE FORM (INTENTIONAL OVERDOSE)
     Route: 048

REACTIONS (10)
  - Toxicity to various agents [Unknown]
  - Muscular weakness [Unknown]
  - Intentional overdose [Unknown]
  - Ventricular tachycardia [Unknown]
  - Somnolence [Unknown]
  - Blood glucose increased [Unknown]
  - Electrocardiogram QRS complex prolonged [Recovered/Resolved]
  - Electrocardiogram QT prolonged [Recovered/Resolved]
  - Suicide attempt [Unknown]
  - Hypokalaemia [Recovered/Resolved]
